FAERS Safety Report 7476007-7 (Version None)
Quarter: 2011Q2

REPORT INFORMATION
  Report Type: 
  Country: None (occurrence: None)
  Receive Date: 20110504
  Receipt Date: 20110419
  Transmission Date: 20111010
  Serious: Yes (Other)
  Sender: FDA-Public Use
  Company Number: 1000020528

PATIENT
  Sex: Female

DRUGS (1)
  1. ESCITALOPRAM [Suspect]
     Dates: start: 20100728

REACTIONS (3)
  - MUSCLE TIGHTNESS [None]
  - INSOMNIA [None]
  - DYSPNOEA [None]
